FAERS Safety Report 10906851 (Version 1)
Quarter: 2015Q1

REPORT INFORMATION
  Report Type: Spontaneous
  Country: None (occurrence: None)
  Receive Date: 20150309
  Receipt Date: 20150309
  Transmission Date: 20150721
  Serious: No
  Sender: FDA-Public Use
  Company Number: None

PATIENT
  Age: 28 Year
  Sex: Female
  Weight: 45 kg

DRUGS (8)
  1. CORTISONE [Suspect]
     Active Substance: CORTISONE\HYDROCORTISONE
     Indication: WEIGHT DECREASED
     Dosage: 2
     Route: 048
     Dates: start: 20150213, end: 20150222
  2. ZINC 50 MG [Concomitant]
  3. SERTALLINE [Concomitant]
  4. VITAMIN B COMPLEX [Concomitant]
     Active Substance: CYANOCOBALAMIN\DEXPANTHENOL\NIACINAMIDE\PYRIDOXINE HYDROCHLORIDE\RIBOFLAVIN 5^-PHOSPHATE SODIUM\THIAMINE HYDROCHLORIDE\VITAMIN B COMPLEX
  5. VITAMIN C 500MG [Concomitant]
  6. GINSENG KIANPI [Suspect]
     Active Substance: ASIAN GINSENG
  7. VITAMIN E [Concomitant]
     Active Substance: .ALPHA.-TOCOPHEROL
  8. BIOTIN 5000 MCG [Concomitant]

REACTIONS (5)
  - Flank pain [None]
  - Product formulation issue [None]
  - Cushingoid [None]
  - Somnolence [None]
  - Headache [None]

NARRATIVE: CASE EVENT DATE: 20150223
